FAERS Safety Report 9246048 (Version 2)
Quarter: 2013Q2

REPORT INFORMATION
  Report Type: Spontaneous
  Country: US (occurrence: US)
  Receive Date: 20130422
  Receipt Date: 20130516
  Transmission Date: 20140414
  Serious: No
  Sender: FDA-Public Use
  Company Number: US-ELI_LILLY_AND_COMPANY-US201304003279

PATIENT
  Age: 54 Year
  Sex: Male

DRUGS (5)
  1. CYMBALTA [Suspect]
     Indication: DIABETIC NEUROPATHY
     Dosage: 30 MG, QD
     Route: 048
     Dates: start: 20130319, end: 20130401
  2. CYMBALTA [Suspect]
     Dosage: 60 MG, QD
     Route: 048
     Dates: start: 20130401, end: 20130409
  3. CYMBALTA [Suspect]
     Dosage: 60 MG, QOD
     Dates: start: 20130409
  4. METFORMIN [Concomitant]
  5. PERIDEX [Concomitant]

REACTIONS (2)
  - Intentional drug misuse [Unknown]
  - Dermatitis contact [Recovered/Resolved]
